FAERS Safety Report 25298304 (Version 1)
Quarter: 2025Q2

REPORT INFORMATION
  Report Type: Spontaneous
  Country: CN (occurrence: CN)
  Receive Date: 20250512
  Receipt Date: 20250512
  Transmission Date: 20250716
  Serious: Yes (Hospitalization, Other)
  Sender: TAKEDA
  Company Number: CN-HUTCHMED LIMITED-HMP2025CN01125

PATIENT
  Age: 72 Year
  Sex: Female
  Weight: 70 kg

DRUGS (2)
  1. FRUQUINTINIB [Suspect]
     Active Substance: FRUQUINTINIB
     Indication: Endometrial cancer
     Dosage: 3 MILLIGRAM, BID
     Dates: start: 20250120, end: 20250202
  2. CAPECITABINE [Concomitant]
     Active Substance: CAPECITABINE
     Indication: Endometrial cancer
     Dosage: 1 GRAM, QD
     Dates: start: 20250120, end: 20250202

REACTIONS (1)
  - Myelosuppression [Recovering/Resolving]

NARRATIVE: CASE EVENT DATE: 20250212
